FAERS Safety Report 4333871-8 (Version None)
Quarter: 2004Q2

REPORT INFORMATION
  Report Type: 
  Country: None (occurrence: None)
  Receive Date: 20040407
  Receipt Date: 20040402
  Transmission Date: 20050107
  Serious: Yes (Hospitalization)
  Sender: FDA-Public Use
  Company Number: 200413799GDDC

PATIENT
  Sex: 0

DRUGS (1)
  1. DESMOPRESSIN [Suspect]
     Dosage: DOSE: UNK

REACTIONS (1)
  - CONVULSION [None]
